FAERS Safety Report 21289539 (Version 2)
Quarter: 2022Q4

REPORT INFORMATION
  Report Type: Spontaneous
  Country: GB (occurrence: GB)
  Receive Date: 20220902
  Receipt Date: 20221028
  Transmission Date: 20230113
  Serious: Yes (Life-Threatening, Hospitalization)
  Sender: FDA-Public Use
  Company Number: GB-ELI_LILLY_AND_COMPANY-GB202209000502

PATIENT
  Sex: Male
  Weight: 87.4 kg

DRUGS (1)
  1. TRULICITY [Suspect]
     Active Substance: DULAGLUTIDE
     Indication: Diabetes mellitus inadequate control
     Dosage: 1.5 MG, WEEKLY (1/W)
     Route: 058
     Dates: start: 20220706, end: 20220718

REACTIONS (1)
  - Anaphylactic reaction [Recovered/Resolved]
